FAERS Safety Report 10580059 (Version 2)
Quarter: 2014Q4

REPORT INFORMATION
  Report Type: Spontaneous
  Country: US (occurrence: US)
  Receive Date: 20141112
  Receipt Date: 20141114
  Transmission Date: 20150529
  Serious: Yes (Other)
  Sender: FDA-Public Use
  Company Number: US-PFIZER INC-2014309667

PATIENT
  Age: 72 Year
  Sex: Male
  Weight: 104 kg

DRUGS (2)
  1. XALATAN [Suspect]
     Active Substance: LATANOPROST
     Indication: GLAUCOMA
     Dosage: 0.005 %, 2X/DAY, 1 DROP EACH EYE IN MORNING AND AT NIGHT
     Route: 047
     Dates: start: 2012
  2. LYRICA [Suspect]
     Active Substance: PREGABALIN
     Indication: DIABETIC NEUROPATHY
     Dosage: 75 MG, 4X/DAY
     Route: 048
     Dates: start: 2011

REACTIONS (2)
  - Pneumonia [Recovered/Resolved]
  - Lung neoplasm malignant [Not Recovered/Not Resolved]

NARRATIVE: CASE EVENT DATE: 201309
